FAERS Safety Report 23166365 (Version 1)
Quarter: 2023Q4

REPORT INFORMATION
  Report Type: Spontaneous
  Country: CN (occurrence: CN)
  Receive Date: 20231109
  Receipt Date: 20231109
  Transmission Date: 20240110
  Serious: Yes (Other)
  Sender: FDA-Public Use
  Company Number: CN-PFIZER INC-PV202300180563

PATIENT
  Age: 59 Year
  Sex: Male
  Weight: 50 kg

DRUGS (2)
  1. VFEND [Suspect]
     Active Substance: VORICONAZOLE
     Indication: Symptomatic treatment
     Dosage: 200 MG, 2X/DAY
     Route: 048
     Dates: start: 20230502, end: 20230515
  2. VORICONAZOLE [Suspect]
     Active Substance: VORICONAZOLE
     Indication: Symptomatic treatment
     Dosage: 300.000 MG, 2X/DAY
     Route: 041
     Dates: start: 20230501, end: 20230501

REACTIONS (3)
  - Vision blurred [Unknown]
  - Retinal haemorrhage [Recovering/Resolving]
  - Cataract [Unknown]

NARRATIVE: CASE EVENT DATE: 20230509
